FAERS Safety Report 7334932-1 (Version None)
Quarter: 2011Q1

REPORT INFORMATION
  Report Type: 
  Country: None (occurrence: None)
  Receive Date: 20110307
  Receipt Date: 20110224
  Transmission Date: 20110831
  Serious: Yes (Other)
  Sender: FDA-Public Use
  Company Number: DE-NOVOPROD-324075

PATIENT
  Sex: Female

DRUGS (2)
  1. DICLOFENAC [Concomitant]
  2. VICTOZA [Suspect]
     Indication: PRODUCT USED FOR UNKNOWN INDICATION
     Dosage: 0.6 MG, QD
     Route: 058
     Dates: start: 20110204, end: 20110214

REACTIONS (4)
  - INJECTION SITE PAIN [None]
  - BACK PAIN [None]
  - JOINT SWELLING [None]
  - URTICARIA [None]
